FAERS Safety Report 20711474 (Version 3)
Quarter: 2022Q2

REPORT INFORMATION
  Report Type: Spontaneous
  Country: US (occurrence: US)
  Receive Date: 20220414
  Receipt Date: 20220526
  Transmission Date: 20220721
  Serious: No
  Sender: FDA-Public Use
  Company Number: US-PFIZER INC-202200468853

PATIENT
  Age: 16 Year
  Sex: Male

DRUGS (1)
  1. GENOTROPIN [Suspect]
     Active Substance: SOMATROPIN
     Dosage: 2.8 MG, DAILY

REACTIONS (6)
  - Drug dose omission by device [Unknown]
  - Poor quality device used [Unknown]
  - Accidental exposure to product [Unknown]
  - Device breakage [Unknown]
  - Device leakage [Unknown]
  - Device malfunction [Unknown]

NARRATIVE: CASE EVENT DATE: 20220324
